FAERS Safety Report 10305554 (Version 1)
Quarter: 2014Q3

REPORT INFORMATION
  Report Type: Spontaneous
  Country: US (occurrence: None)
  Receive Date: 20140711
  Receipt Date: 20140711
  Transmission Date: 20150326
  Serious: Yes (Other)
  Sender: FDA-Public Use
  Company Number: US-H14001-14-00172

PATIENT
  Age: 59 Year
  Sex: Female

DRUGS (8)
  1. ATENOLOL (ATENOLOL) (ATENOLOL) [Concomitant]
     Active Substance: ATENOLOL
  2. OMEPRAZOLE/SODIUM BICARBONATE (ZEGERID /06027801/) (SODIUM BICARBONATE, OMEPRAZOLE) [Concomitant]
  3. ESTROGEN (ESTRADIOL) (ESTRADIOL) [Concomitant]
  4. TRAMADOL (TRAMADOL) (TRAMADOL) [Concomitant]
     Active Substance: TRAMADOL
  5. SIMVASTATIN (SIMVASTATIN) (SIMVASTATIN) [Concomitant]
     Active Substance: SIMVASTATIN
  6. ASPIRIN (ACETYLSALICYLIC ACID) [Concomitant]
     Active Substance: ASPIRIN
  7. LEVOFLOXACIN [Suspect]
     Active Substance: LEVOFLOXACIN
     Indication: INFECTION
     Dates: start: 200912
  8. LEVOTHYROXINE (LEVOTHYROXINE) (LEVOTHYROXINE) [Concomitant]
     Active Substance: LEVOTHYROXINE

REACTIONS (13)
  - Loss of employment [None]
  - Tearfulness [None]
  - Frustration [None]
  - Amnesia [None]
  - Cyst [None]
  - Intervertebral disc protrusion [None]
  - Depression [None]
  - Paraesthesia [None]
  - Flushing [None]
  - Disturbance in attention [None]
  - Poor quality sleep [None]
  - Affect lability [None]
  - Asthenia [None]
